FAERS Safety Report 12135162 (Version 1)
Quarter: 2016Q1

REPORT INFORMATION
  Report Type: Spontaneous
  Country: IT (occurrence: IT)
  Receive Date: 20160301
  Receipt Date: 20160301
  Transmission Date: 20160526
  Serious: Yes (Hospitalization)
  Sender: FDA-Public Use
  Company Number: PHHY2016IT023586

PATIENT
  Age: 18 Year
  Sex: Female

DRUGS (6)
  1. EUTIMIL [Concomitant]
     Active Substance: PAROXETINE HYDROCHLORIDE
     Indication: MENTAL DISORDER
     Dosage: 20 MG, UNK
     Route: 048
     Dates: start: 20160111
  2. TEGRETOL [Suspect]
     Active Substance: CARBAMAZEPINE
     Indication: SUICIDAL IDEATION
     Dosage: 8000 MG, TOTAL
     Route: 048
     Dates: start: 20160127, end: 20160127
  3. TAVOR (LORAZEPAM) [Concomitant]
     Active Substance: LORAZEPAM
     Indication: MENTAL DISORDER
     Dosage: 2.5 MG, UNK
     Route: 048
     Dates: start: 20160111
  4. ANTRA [Suspect]
     Active Substance: OMEPRAZOLE
     Indication: SUICIDAL IDEATION
     Dosage: 200 MG, TOTAL
     Route: 048
     Dates: start: 20160127, end: 20160127
  5. REMERON [Concomitant]
     Active Substance: MIRTAZAPINE
     Indication: MENTAL DISORDER
     Dosage: 15 MG, UNK
     Route: 048
     Dates: start: 20160111
  6. TEGRETOL [Suspect]
     Active Substance: CARBAMAZEPINE
     Dosage: 200 MG, TID
     Route: 048
     Dates: start: 20160128

REACTIONS (1)
  - Drug abuse [Recovered/Resolved]

NARRATIVE: CASE EVENT DATE: 20160127
